FAERS Safety Report 4594914-X (Version None)
Quarter: 2005Q1

REPORT INFORMATION
  Report Type: 
  Country: None (occurrence: None)
  Receive Date: 20050223
  Receipt Date: 20050211
  Transmission Date: 20050727
  Serious: Yes (Congenital Anomaly)
  Sender: FDA-Public Use
  Company Number: 2005029317

PATIENT
  Age: 1 Year
  Sex: Female

DRUGS (1)
  1. MEDROXYPROGESTERONE ACETATE [Suspect]
     Indication: AMENORRHOEA
     Dates: start: 20020101

REACTIONS (6)
  - CONGENITAL GENITAL MALFORMATION FEMALE [None]
  - CONGENITAL NEUROLOGICAL DEGENERATION [None]
  - CONGENITAL URETHRAL ANOMALY [None]
  - DRUG EXPOSURE DURING PREGNANCY [None]
  - KIDNEY MALFORMATION [None]
  - RESPIRATORY TRACT MALFORMATION [None]
